FAERS Safety Report 5321108-2 (Version None)
Quarter: 2007Q2

REPORT INFORMATION
  Report Type: 
  Country: None (occurrence: None)
  Receive Date: 20070510
  Receipt Date: 20070508
  Transmission Date: 20071010
  Serious: Yes (Hospitalization)
  Sender: FDA-Public Use
  Company Number: AR-BRISTOL-MYERS SQUIBB COMPANY-13113147

PATIENT
  Age: 73 Year
  Sex: Female
  Weight: 81 kg

DRUGS (7)
  1. IRBESARTAN [Suspect]
     Indication: HYPERTENSION
     Dates: start: 20050211
  2. IRBESARTAN [Suspect]
     Dates: start: 20050915
  3. BLINDED: PLACEBO [Suspect]
     Indication: HYPERTENSION
     Dates: start: 20050211
  4. BLINDED: PLACEBO [Suspect]
     Dates: start: 20050915
  5. CLOPIDOGREL BISULFATE [Suspect]
     Indication: PROPHYLAXIS
     Dates: start: 20050211, end: 20050909
  6. ASPIRIN [Suspect]
     Indication: PROPHYLAXIS
     Dates: start: 20050211, end: 20050909
  7. AMIODARONE HCL [Concomitant]

REACTIONS (1)
  - EPISTAXIS [None]
